FAERS Safety Report 20360760 (Version 1)
Quarter: 2022Q1

REPORT INFORMATION
  Report Type: Spontaneous
  Country: US (occurrence: US)
  Receive Date: 20220121
  Receipt Date: 20220121
  Transmission Date: 20220424
  Serious: Yes (Hospitalization)
  Sender: FDA-Public Use
  Company Number: US-SANOFI-00934756

PATIENT
  Sex: Female

DRUGS (3)
  1. DUPIXENT [Suspect]
     Active Substance: DUPILUMAB
     Indication: Asthma
     Dosage: 300 MG, QOW
     Route: 065
  2. REPATHA [Concomitant]
     Active Substance: EVOLOCUMAB
  3. NYSTATIN [Concomitant]
     Active Substance: NYSTATIN

REACTIONS (3)
  - Hypersensitivity [Unknown]
  - Vomiting [Unknown]
  - Product use issue [Unknown]
